FAERS Safety Report 7648346-8 (Version None)
Quarter: 2011Q3

REPORT INFORMATION
  Report Type: 
  Country: None (occurrence: None)
  Receive Date: 20110801
  Receipt Date: 20110722
  Transmission Date: 20111222
  Serious: Yes (Hospitalization)
  Sender: FDA-Public Use
  Company Number: BR-ASTRAZENECA-2011SE44278

PATIENT
  Age: 2 Month
  Sex: Female
  Weight: 12 kg

DRUGS (4)
  1. OMEPRAZOLE MAGNESIUM [Suspect]
     Indication: GASTROOESOPHAGEAL REFLUX DISEASE
     Route: 048
     Dates: start: 20090201, end: 20100101
  2. OMEPRAZOLE MAGNESIUM [Suspect]
     Route: 048
     Dates: start: 20100101
  3. OMEPRAZOLE MAGNESIUM [Suspect]
     Route: 048
     Dates: start: 20100101
  4. BROMOPRIDE [Concomitant]
     Route: 048
     Dates: start: 20081201

REACTIONS (5)
  - GASTROOESOPHAGEAL REFLUX DISEASE [None]
  - CONVULSION [None]
  - OFF LABEL USE [None]
  - APNOEA [None]
  - PNEUMONIA [None]
